FAERS Safety Report 9170741 (Version 2)
Quarter: 2013Q1

REPORT INFORMATION
  Report Type: Spontaneous
  Country: US (occurrence: None)
  Receive Date: 20130311
  Receipt Date: 20130327
  Transmission Date: 20140127
  Serious: Yes (Other)
  Sender: FDA-Public Use
  Company Number: FK201300757

PATIENT
  Age: 48 Year
  Sex: Male

DRUGS (11)
  1. FLUOROURACIL [Suspect]
     Indication: COLORECTAL CANCER METASTATIC
  2. ZIV-AFLIBERCEPT [Suspect]
     Indication: COLORECTAL CANCER METASTATIC
  3. ZIV-AFLIBERCEPT [Suspect]
  4. IRINOTECAN [Suspect]
     Indication: COLORECTAL CANCER METASTATIC
  5. FOLINIC ACID [Suspect]
     Indication: COLORECTAL CANCER METASTATIC
  6. RANITIDINE [Concomitant]
  7. FERROUS SULFATE (FERROUS SULFATE) [Concomitant]
  8. APREPITANT [Concomitant]
  9. ONDANSETRON (ONDANSETRON) [Concomitant]
  10. LORAZEPAM (LORAZEPAM) [Concomitant]
  11. HYDROCODONE (HYDROCODONE) [Concomitant]

REACTIONS (10)
  - Headache [None]
  - Post procedural haemorrhage [None]
  - Hypertension [None]
  - Epistaxis [None]
  - Gastric haemorrhage [None]
  - Platelet count decreased [None]
  - Blood glucose increased [None]
  - Blood alkaline phosphatase increased [None]
  - Aspartate aminotransferase increased [None]
  - Alanine aminotransferase increased [None]
